FAERS Safety Report 4327720-1 (Version None)
Quarter: 2004Q1

REPORT INFORMATION
  Report Type: 
  Country: None (occurrence: None)
  Receive Date: 20040325
  Receipt Date: 20021007
  Transmission Date: 20041129
  Serious: Yes (Hospitalization)
  Sender: FDA-Public Use
  Company Number: 2002IC000283

PATIENT
  Age: 65 Year
  Sex: Male

DRUGS (3)
  1. FLUOROURACIL [Suspect]
     Dosage: 765 MG; INTRAVENOUS
     Route: 042
  2. LEUCOVORIN CALCIUM [Suspect]
     Dosage: 36 MG; INTRAVENOUS
     Route: 042
  3. PRAVASTATIN SODIUM [Concomitant]

REACTIONS (6)
  - DYSPHAGIA [None]
  - MOUTH ULCERATION [None]
  - OESOPHAGEAL CANDIDIASIS [None]
  - OESOPHAGEAL ULCER [None]
  - STOMATITIS [None]
  - WEIGHT DECREASED [None]
